FAERS Safety Report 6272188-1 (Version None)
Quarter: 2009Q3

REPORT INFORMATION
  Report Type: 
  Country: None (occurrence: None)
  Receive Date: 20090717
  Receipt Date: 20090715
  Transmission Date: 20100115
  Serious: Yes (Other)
  Sender: FDA-Public Use
  Company Number: DK-BRISTOL-MYERS SQUIBB COMPANY-14701874

PATIENT
  Age: 47 Year
  Sex: Female

DRUGS (1)
  1. ORENCIA [Suspect]
     Indication: RHEUMATOID ARTHRITIS
     Route: 042
     Dates: start: 20090428, end: 20090622

REACTIONS (2)
  - MYALGIA [None]
  - POLYARTHRITIS [None]
